FAERS Safety Report 25864331 (Version 1)
Quarter: 2025Q3

REPORT INFORMATION
  Report Type: Spontaneous
  Country: US (occurrence: None)
  Receive Date: 20250929
  Receipt Date: 20250929
  Transmission Date: 20251020
  Serious: Yes (Disabling)
  Sender: FDA-CTU
  Company Number: None

PATIENT
  Age: 68 Year
  Sex: Male
  Weight: 85.5 kg

DRUGS (1)
  1. REPATHA [Suspect]
     Active Substance: EVOLOCUMAB
     Indication: Blood cholesterol increased
     Route: 061
     Dates: start: 20250916, end: 20250916

REACTIONS (10)
  - Nausea [None]
  - Abdominal distension [None]
  - Flatulence [None]
  - Diarrhoea [None]
  - Fatigue [None]
  - Back pain [None]
  - Influenza like illness [None]
  - Depressed mood [None]
  - Insomnia [None]
  - Loss of personal independence in daily activities [None]

NARRATIVE: CASE EVENT DATE: 20250916
